FAERS Safety Report 19051043 (Version 1)
Quarter: 2021Q1

REPORT INFORMATION
  Report Type: Spontaneous
  Country: US (occurrence: US)
  Receive Date: 20210323
  Receipt Date: 20210323
  Transmission Date: 20210420
  Serious: Yes (Hospitalization)
  Sender: FDA-Public Use
  Company Number: None

PATIENT
  Age: 83 Year
  Sex: Female

DRUGS (1)
  1. TADALAFIL 20MG TAB [Suspect]
     Active Substance: TADALAFIL
     Indication: PULMONARY HYPERTENSION
     Dosage: 2 TABS (40MG) QD PO
     Route: 048
     Dates: start: 20190612

REACTIONS (2)
  - Constipation [None]
  - Dyspnoea [None]

NARRATIVE: CASE EVENT DATE: 20210321
